FAERS Safety Report 19660777 (Version 2)
Quarter: 2021Q3

REPORT INFORMATION
  Report Type: Spontaneous
  Country: US (occurrence: US)
  Receive Date: 20210805
  Receipt Date: 20210813
  Transmission Date: 20211014
  Serious: No
  Sender: FDA-Public Use
  Company Number: US-SA-2021SA256536

PATIENT
  Age: 13 Year
  Sex: Female

DRUGS (1)
  1. DUPIXENT [Suspect]
     Active Substance: DUPILUMAB
     Indication: DERMATITIS ATOPIC
     Dosage: 200 MG
     Route: 058
     Dates: start: 20210628

REACTIONS (4)
  - Product use issue [Unknown]
  - Eye irritation [Unknown]
  - Ocular hyperaemia [Unknown]
  - Oral herpes [Unknown]

NARRATIVE: CASE EVENT DATE: 20210628
